FAERS Safety Report 4298002-1 (Version None)
Quarter: 2004Q1

REPORT INFORMATION
  Report Type: 
  Country: None (occurrence: None)
  Receive Date: 20040218
  Receipt Date: 20011002
  Transmission Date: 20041129
  Serious: Yes (Other)
  Sender: FDA-Public Use
  Company Number: US-BRISTOL-MYERS SQUIBB COMPANY-11035631

PATIENT
  Age: 31 Year
  Sex: Male

DRUGS (5)
  1. STADOL [Suspect]
     Route: 045
     Dates: start: 19961212, end: 19980606
  2. STADOL [Suspect]
     Dosage: ROUTE OF ADMINISTRATION:  INJECTION
  3. HYDROCODONE + ACETAMINOPHEN [Concomitant]
  4. AMBIEN [Concomitant]
  5. PROMETHAZINE [Concomitant]

REACTIONS (1)
  - DEPENDENCE [None]
